FAERS Safety Report 11004449 (Version 4)
Quarter: 2015Q2

REPORT INFORMATION
  Report Type: Spontaneous
  Country: US (occurrence: US)
  Receive Date: 20150409
  Receipt Date: 20150625
  Transmission Date: 20150821
  Serious: Yes (Hospitalization, Other)
  Sender: FDA-Public Use
  Company Number: US-BAXTER-2015BAX018318

PATIENT
  Age: 55 Year
  Sex: Male

DRUGS (1)
  1. DIANEAL LOW CALCIUM PERITONEAL DIALYSIS SOLUTION WITH DEXTROSE [Suspect]
     Active Substance: CALCIUM CHLORIDE\DEXTROSE\MAGNESIUM CHLORIDE\SODIUM CHLORIDE\SODIUM LACTATE
     Indication: CHRONIC KIDNEY DISEASE
     Route: 033

REACTIONS (6)
  - Asthenia [Recovering/Resolving]
  - Post procedural haemorrhage [Recovering/Resolving]
  - Hypotension [Recovering/Resolving]
  - Disorientation [Recovering/Resolving]
  - Myocardial infarction [Recovering/Resolving]
  - Coronary artery occlusion [Unknown]

NARRATIVE: CASE EVENT DATE: 201502
